FAERS Safety Report 5826411-5 (Version None)
Quarter: 2008Q3

REPORT INFORMATION
  Report Type: 
  Country: None (occurrence: None)
  Receive Date: 20080729
  Receipt Date: 20080709
  Transmission Date: 20090109
  Serious: No
  Sender: FDA-Public Use
  Company Number: US-BOEHRINGER INGELHEIM GMBH, GERMANY-2008-BP-10863BP

PATIENT
  Sex: Male

DRUGS (7)
  1. SPIRIVA [Suspect]
     Indication: EMPHYSEMA
     Route: 055
     Dates: start: 20070101
  2. SAW PALMETTO [Concomitant]
     Indication: PROSTATIC DISORDER
     Route: 048
  3. B6 [Concomitant]
     Indication: ASTHENIA
     Route: 048
  4. SELENIUM [Concomitant]
     Indication: ANTIOXIDANT THERAPY
     Route: 048
  5. ASPIRIN [Concomitant]
     Route: 048
  6. GREEN TEA- E-TEA [Concomitant]
     Route: 048
  7. SERTRALINE [Concomitant]
     Indication: STRESS
     Route: 048
     Dates: start: 20080701

REACTIONS (1)
  - ALOPECIA [None]
